FAERS Safety Report 11129993 (Version 1)
Quarter: 2015Q2

REPORT INFORMATION
  Report Type: Report from Study
  Country: US (occurrence: US)
  Receive Date: 20150521
  Receipt Date: 20150521
  Transmission Date: 20150821
  Serious: Yes (Hospitalization)
  Sender: FDA-Public Use
  Company Number: PHEH2015US009074

PATIENT
  Age: 47 Year
  Sex: Female

DRUGS (1)
  1. GILENYA [Suspect]
     Active Substance: FINGOLIMOD HYDROCHLORIDE
     Indication: MULTIPLE SCLEROSIS
     Dosage: 0.5 MG, QD
     Route: 048
     Dates: start: 20150507

REACTIONS (10)
  - Incoherent [Unknown]
  - Paraesthesia [Recovered/Resolved]
  - Vomiting [Unknown]
  - Burning sensation [Recovered/Resolved]
  - Headache [Unknown]
  - Nausea [Unknown]
  - Dysarthria [Unknown]
  - Visual impairment [Recovered/Resolved]
  - Nausea [Recovered/Resolved]
  - Back pain [Unknown]

NARRATIVE: CASE EVENT DATE: 20150507
